FAERS Safety Report 16212907 (Version 3)
Quarter: 2019Q2

REPORT INFORMATION
  Report Type: Spontaneous
  Country: IE (occurrence: IE)
  Receive Date: 20190418
  Receipt Date: 20190510
  Transmission Date: 20190711
  Serious: Yes (Death)
  Sender: FDA-Public Use
  Company Number: IE-PURDUE-GBR-2019-0065957

PATIENT
  Sex: Male

DRUGS (1)
  1. PALLADONE [Suspect]
     Active Substance: HYDROMORPHONE HYDROCHLORIDE
     Indication: PALLIATIVE CARE
     Dosage: 1.3 MG, UNK
     Route: 065
     Dates: start: 201810

REACTIONS (1)
  - Malignant neoplasm progression [Fatal]
